FAERS Safety Report 9933029 (Version 1)
Quarter: 2014Q1

REPORT INFORMATION
  Report Type: Spontaneous
  Country: US (occurrence: US)
  Receive Date: 20140228
  Receipt Date: 20140228
  Transmission Date: 20141002
  Serious: No
  Sender: FDA-Public Use
  Company Number: US-GLAXOSMITHKLINE-A1044726A

PATIENT
  Age: 52 Year
  Sex: Male

DRUGS (4)
  1. LAMOTRIGINE [Suspect]
     Indication: PARTIAL SEIZURES
     Dosage: 150MG TWICE PER DAY
     Route: 048
     Dates: start: 2004
  2. METFORMIN [Concomitant]
  3. DIOVAN [Concomitant]
  4. SIMVASTATIN [Concomitant]

REACTIONS (1)
  - Drug ineffective [Unknown]
